FAERS Safety Report 10249520 (Version 2)
Quarter: 2015Q2

REPORT INFORMATION
  Report Type: Spontaneous
  Country: US (occurrence: US)
  Receive Date: 20140620
  Receipt Date: 20150629
  Transmission Date: 20150821
  Serious: Yes (Other)
  Sender: FDA-Public Use
  Company Number: US-SA-2014SA078711

PATIENT
  Age: 58 Year

DRUGS (1)
  1. PLAVIX [Suspect]
     Active Substance: CLOPIDOGREL BISULFATE
     Indication: TRANSIENT ISCHAEMIC ATTACK
     Route: 048
     Dates: start: 200806, end: 20091216

REACTIONS (3)
  - Haemorrhage [Unknown]
  - Thrombocytopenic purpura [Unknown]
  - Multiple injuries [Unknown]

NARRATIVE: CASE EVENT DATE: 20091216
